FAERS Safety Report 9155752 (Version 1)
Quarter: 2013Q1

REPORT INFORMATION
  Report Type: Spontaneous
  Country: HU (occurrence: HU)
  Receive Date: 20130311
  Receipt Date: 20130311
  Transmission Date: 20140127
  Serious: Yes (Life-Threatening)
  Sender: FDA-Public Use
  Company Number: PHHY2013HU023399

PATIENT
  Age: 16 Year
  Sex: Male

DRUGS (1)
  1. METHOTREXAT [Suspect]
     Indication: CHONDROSARCOMA
     Dosage: 5000 MG
     Dates: start: 20130218, end: 20130218

REACTIONS (5)
  - Flushing [Recovered/Resolved]
  - Hypoaesthesia oral [Recovered/Resolved]
  - Sensation of foreign body [Recovered/Resolved]
  - Urticaria [Recovered/Resolved]
  - Infusion related reaction [None]
